FAERS Safety Report 7620908-3 (Version None)
Quarter: 2011Q3

REPORT INFORMATION
  Report Type: 
  Country: None (occurrence: None)
  Receive Date: 20110719
  Receipt Date: 20110708
  Transmission Date: 20111222
  Serious: Yes (Hospitalization, Other)
  Sender: FDA-Public Use
  Company Number: US-BAYER-201034536NA

PATIENT
  Age: 29 Year
  Sex: Female
  Weight: 68.027 kg

DRUGS (10)
  1. LORA TAB [Concomitant]
     Route: 048
  2. PRILOSEC [Concomitant]
     Dosage: 20 MG, QD
     Route: 048
     Dates: start: 20061017
  3. PHENERGAN HCL [Concomitant]
     Dosage: 12.5 MG, UNK
     Route: 048
  4. PROVERA [Concomitant]
     Dosage: 10 MG, UNK
  5. YAZ [Suspect]
     Indication: PRODUCT USED FOR UNKNOWN INDICATION
     Route: 048
  6. PROMETHAZINE [Concomitant]
     Dosage: 25 MG, UNK
     Route: 048
  7. YASMIN [Suspect]
     Indication: ORAL CONTRACEPTION
     Dosage: UNK
     Route: 048
     Dates: start: 20060101, end: 20080901
  8. DROSPIRENONE AND ETHINYL ESTRADIOL [Suspect]
     Indication: ORAL CONTRACEPTION
     Dosage: UNK
     Route: 048
     Dates: start: 20081001, end: 20081201
  9. XANAX [Concomitant]
     Dosage: 1 MG, UNK
     Route: 048
  10. CIPROFLOXACIN HCL [Concomitant]
     Dosage: 500 MG, UNK
     Route: 048

REACTIONS (3)
  - GALLBLADDER DISORDER [None]
  - CHOLECYSTITIS CHRONIC [None]
  - CHOLELITHIASIS [None]
